FAERS Safety Report 12288939 (Version 1)
Quarter: 2016Q2

REPORT INFORMATION
  Report Type: Spontaneous
  Country: US (occurrence: US)
  Receive Date: 20160421
  Receipt Date: 20160421
  Transmission Date: 20160815
  Serious: Yes (Hospitalization, Other)
  Sender: FDA-Public Use
  Company Number: US-ROCHE-1742214

PATIENT
  Sex: Male

DRUGS (1)
  1. RITUXAN [Suspect]
     Active Substance: RITUXIMAB
     Indication: GRANULOMATOSIS WITH POLYANGIITIS
     Route: 065
     Dates: start: 20160329

REACTIONS (8)
  - Colonic abscess [Recovered/Resolved]
  - Large intestine perforation [Recovering/Resolving]
  - Abdominal pain [Recovered/Resolved]
  - Flatulence [Recovered/Resolved]
  - Pneumonia [Unknown]
  - Constipation [Recovered/Resolved]
  - Pulmonary embolism [Unknown]
  - Peritoneal disorder [Recovered/Resolved]
